FAERS Safety Report 5424234-2 (Version None)
Quarter: 2007Q3

REPORT INFORMATION
  Report Type: 
  Country: None (occurrence: None)
  Receive Date: 20070823
  Receipt Date: 20070816
  Transmission Date: 20080115
  Serious: Yes (Life-Threatening)
  Sender: FDA-Public Use
  Company Number: FR-PFIZER INC-2007069131

PATIENT
  Sex: Female
  Weight: 55 kg

DRUGS (8)
  1. AROMASIN [Suspect]
     Indication: BREAST CANCER
     Route: 048
  2. DIGOXIN [Concomitant]
     Route: 048
     Dates: start: 19970101, end: 20031027
  3. FLUINDIONE [Concomitant]
     Route: 048
     Dates: start: 19970101, end: 20031027
  4. CARBIMAZOLE [Concomitant]
     Route: 048
     Dates: start: 19770101, end: 20031027
  5. TRINITRINE [Concomitant]
     Route: 048
     Dates: start: 19970101, end: 20031027
  6. VALPROMIDE [Concomitant]
     Route: 048
     Dates: start: 19720101, end: 20031027
  7. CLOBAZAM [Concomitant]
     Route: 048
     Dates: start: 19720101, end: 20031027
  8. ZOPICLONE [Concomitant]
     Route: 048
     Dates: start: 19970101, end: 20031027

REACTIONS (1)
  - PULMONARY EMBOLISM [None]
